FAERS Safety Report 8849244 (Version 1)
Quarter: 2012Q4

REPORT INFORMATION
  Report Type: 
  Country: US (occurrence: US)
  Receive Date: 20121019
  Receipt Date: 20121019
  Transmission Date: 20130627
  Serious: Yes (Hospitalization)
  Sender: FDA-Public Use
  Company Number: US-JNJFOC-20121006847

PATIENT
  Sex: Male
  Weight: 104.33 kg

DRUGS (1)
  1. DURAGESIC [Suspect]
     Indication: BACK PAIN
     Route: 062

REACTIONS (6)
  - Back disorder [Recovered/Resolved]
  - Dermatitis contact [Recovered/Resolved]
  - Tension [Not Recovered/Not Resolved]
  - Nervousness [Not Recovered/Not Resolved]
  - Wrong technique in drug usage process [Recovered/Resolved]
  - Product quality issue [Unknown]
